FAERS Safety Report 20683042 (Version 5)
Quarter: 2022Q3

REPORT INFORMATION
  Report Type: Spontaneous
  Country: US (occurrence: US)
  Receive Date: 20220407
  Receipt Date: 20220822
  Transmission Date: 20221026
  Serious: No
  Sender: FDA-Public Use
  Company Number: US-BRISTOL-MYERS SQUIBB COMPANY-2022-014278

PATIENT
  Age: 86 Year
  Sex: Female

DRUGS (2)
  1. REVLIMID [Suspect]
     Active Substance: LENALIDOMIDE
     Indication: Product used for unknown indication
     Dosage: 10MG OTHER ORAL
     Route: 048
     Dates: start: 20220224
  2. REVLIMID [Suspect]
     Active Substance: LENALIDOMIDE
     Indication: Plasma cell myeloma
     Dosage: FREQUENCY-EVERY 14 DAYS.
     Route: 048
     Dates: start: 202202

REACTIONS (17)
  - Hypertension [Unknown]
  - Urinary tract infection [Recovering/Resolving]
  - Constipation [Recovering/Resolving]
  - Abdominal discomfort [Unknown]
  - Vomiting [Unknown]
  - Fall [Unknown]
  - Swelling [Unknown]
  - Dysphagia [Unknown]
  - Dehydration [Unknown]
  - Hypersensitivity [Unknown]
  - Anaemia [Unknown]
  - Blood iron decreased [Unknown]
  - Peripheral swelling [Unknown]
  - Platelet count decreased [Unknown]
  - Off label use [Unknown]
  - Malaise [Unknown]
  - Blood sodium decreased [Unknown]

NARRATIVE: CASE EVENT DATE: 20220305
